FAERS Safety Report 5166302-9 (Version None)
Quarter: 2006Q4

REPORT INFORMATION
  Report Type: 
  Country: None (occurrence: None)
  Receive Date: 20061129
  Receipt Date: 20061121
  Transmission Date: 20070319
  Serious: Yes (Life-Threatening, Hospitalization)
  Sender: FDA-Public Use
  Company Number: 2006PV024312

PATIENT
  Age: 48 Year
  Sex: Female
  Weight: 152.4086 kg

DRUGS (3)
  1. BYETTA [Suspect]
     Indication: DIABETES MELLITUS NON-INSULIN-DEPENDENT
     Dosage: SEE IMAGE
     Route: 058
     Dates: end: 20060829
  2. BYETTA [Suspect]
     Indication: DIABETES MELLITUS NON-INSULIN-DEPENDENT
     Dosage: SEE IMAGE
     Route: 058
     Dates: start: 20060709
  3. LANTUS [Concomitant]

REACTIONS (7)
  - AGITATION [None]
  - CONFUSIONAL STATE [None]
  - DRUG INEFFECTIVE [None]
  - GRAND MAL CONVULSION [None]
  - HYPERGLYCAEMIA [None]
  - THERAPEUTIC RESPONSE UNEXPECTED [None]
  - WEIGHT DECREASED [None]
